FAERS Safety Report 6538693-5 (Version None)
Quarter: 2010Q1

REPORT INFORMATION
  Report Type: 
  Country: None (occurrence: None)
  Receive Date: 20100114
  Receipt Date: 20100114
  Transmission Date: 20100710
  Serious: Yes (Life-Threatening, Hospitalization, Other)
  Sender: FDA-Public Use
  Company Number: None

PATIENT
  Age: 49 Year
  Sex: Female
  Weight: 74.8435 kg

DRUGS (2)
  1. INVEGA [Suspect]
     Indication: BIPOLAR DISORDER
     Dosage: 3 MG OD ORAL
     Route: 048
     Dates: start: 20080701, end: 20081201
  2. INVEGA [Suspect]
     Indication: BIPOLAR DISORDER
     Dosage: 3 MG OD ORAL
     Route: 048
     Dates: start: 20090301, end: 20090601

REACTIONS (6)
  - CRYING [None]
  - DIZZINESS [None]
  - FEELING ABNORMAL [None]
  - INAPPROPRIATE AFFECT [None]
  - INSOMNIA [None]
  - SUICIDAL IDEATION [None]
